FAERS Safety Report 7439599-X (Version None)
Quarter: 2011Q2

REPORT INFORMATION
  Report Type: 
  Country: None (occurrence: None)
  Receive Date: 20110427
  Receipt Date: 20100316
  Transmission Date: 20111010
  Serious: No
  Sender: FDA-Public Use
  Company Number: US-BAYER-201017683NA

PATIENT
  Sex: Female

DRUGS (1)
  1. YAZ [Suspect]
     Indication: CONTRACEPTION
     Dosage: UNK
     Dates: start: 20080301

REACTIONS (4)
  - HEART RATE IRREGULAR [None]
  - DIZZINESS [None]
  - SKIN DISCOLOURATION [None]
  - FATIGUE [None]
